FAERS Safety Report 18602017 (Version 1)
Quarter: 2020Q4

REPORT INFORMATION
  Report Type: Spontaneous
  Country: RO (occurrence: RO)
  Receive Date: 20201210
  Receipt Date: 20201210
  Transmission Date: 20210114
  Serious: Yes (Other)
  Sender: FDA-Public Use
  Company Number: NVSC2020RO326976

PATIENT
  Age: 30 Year
  Sex: Male

DRUGS (7)
  1. AMISULPRIDE [Suspect]
     Active Substance: AMISULPRIDE
     Indication: NEUROLEPTIC MALIGNANT SYNDROME
  2. CLONAZEPAM. [Suspect]
     Active Substance: CLONAZEPAM
     Indication: NEUROLEPTIC MALIGNANT SYNDROME
     Dosage: 6 MG
     Route: 065
  3. CLOZAPINE. [Suspect]
     Active Substance: CLOZAPINE
     Indication: BIPOLAR DISORDER
     Dosage: 350 MG
     Route: 065
  4. AMISULPRIDE [Suspect]
     Active Substance: AMISULPRIDE
     Indication: BIPOLAR DISORDER
     Dosage: 800 MG
     Route: 065
  5. CLONAZEPAM. [Suspect]
     Active Substance: CLONAZEPAM
     Indication: BIPOLAR DISORDER
  6. SODIUM VALPROATE [Suspect]
     Active Substance: VALPROATE SODIUM
     Indication: NEUROLEPTIC MALIGNANT SYNDROME
     Dosage: 2000 MG
     Route: 065
  7. LEVOMEPROMAZINE [Suspect]
     Active Substance: LEVOMEPROMAZINE
     Indication: NEUROLEPTIC MALIGNANT SYNDROME
     Dosage: 100 MG
     Route: 065

REACTIONS (3)
  - Therapeutic product effect incomplete [Unknown]
  - Neuroleptic malignant syndrome [Recovering/Resolving]
  - Drug ineffective [Unknown]
